FAERS Safety Report 16160680 (Version 6)
Quarter: 2019Q3

REPORT INFORMATION
  Report Type: Spontaneous
  Country: TH (occurrence: TH)
  Receive Date: 20190405
  Receipt Date: 20190704
  Transmission Date: 20191004
  Serious: Yes (Life-Threatening, Hospitalization, Other)
  Sender: FDA-Public Use
  Company Number: PHHY2019TH071826

PATIENT
  Age: 57 Year
  Sex: Male

DRUGS (12)
  1. MYCOPHENOLATE MOFETIL. [Suspect]
     Active Substance: MYCOPHENOLATE MOFETIL
     Indication: IMMUNOSUPPRESSANT DRUG THERAPY
     Dosage: 1 G, QD (STARTING DOSE AFTER SECOND TRANSPLANTATION FROM D7)
     Route: 065
  2. TACROLIMUS. [Suspect]
     Active Substance: TACROLIMUS
     Indication: LIVER TRANSPLANT
     Dosage: 1 DF, Q12H
     Route: 065
     Dates: start: 20170727, end: 20170809
  3. MYCOPHENOLATE MOFETIL. [Suspect]
     Active Substance: MYCOPHENOLATE MOFETIL
     Indication: LIVER TRANSPLANT
     Dosage: 2 DF, Q12H
     Route: 065
     Dates: start: 20170804, end: 20170809
  4. METHYLPREDNISOLONE. [Suspect]
     Active Substance: METHYLPREDNISOLONE
     Indication: IMMUNOSUPPRESSANT DRUG THERAPY
     Dosage: 200 MG, QD
     Route: 042
     Dates: start: 20170727, end: 20170801
  5. TENOFOVIR [Concomitant]
     Active Substance: TENOFOVIR
     Indication: HEPATOCELLULAR CARCINOMA
     Dosage: 300 MG, QD
     Route: 065
  6. TENOFOVIR [Concomitant]
     Active Substance: TENOFOVIR
     Indication: HEPATITIS B
  7. PREDNISOLONE. [Concomitant]
     Active Substance: PREDNISOLONE
     Indication: IMMUNOSUPPRESSANT DRUG THERAPY
  8. BASILIXIMAB [Suspect]
     Active Substance: BASILIXIMAB
     Indication: LIVER TRANSPLANT
     Dosage: 20 MG
     Route: 042
     Dates: start: 20170803, end: 20170803
  9. BASILIXIMAB [Suspect]
     Active Substance: BASILIXIMAB
     Indication: IMMUNOSUPPRESSANT DRUG THERAPY
     Dosage: ONLY SINGLE DOSE OF BASILIXIMAB IV (20 MG) AT POST-OPERATIVE D1 AFTER FIRST TRANSPLANTATION
     Route: 042
  10. TACROLIMUS. [Suspect]
     Active Substance: TACROLIMUS
     Indication: IMMUNOSUPPRESSANT DRUG THERAPY
     Dosage: 2 MG, QD (STARTING DOSE AFTER SECOND TRANSPLANT SINCE D1)
     Route: 065
  11. METHYLPREDNISOLONE. [Suspect]
     Active Substance: METHYLPREDNISOLONE
     Indication: LIVER TRANSPLANT
     Dosage: 1 G
     Route: 042
     Dates: start: 2017
  12. PREDNISOLONE. [Concomitant]
     Active Substance: PREDNISOLONE
     Indication: LIVER TRANSPLANT
     Dosage: 20 MG, QD
     Route: 065
     Dates: start: 20170801, end: 20170809

REACTIONS (14)
  - Ascites [Recovered/Resolved]
  - Pyrexia [Recovered/Resolved]
  - Phaeohyphomycosis [Recovered/Resolved]
  - Hepatic infarction [Unknown]
  - Product use in unapproved indication [Unknown]
  - Hepatic function abnormal [Recovered/Resolved]
  - Portal vein thrombosis [Recovered/Resolved]
  - Hepatic artery thrombosis [Recovered/Resolved]
  - Graft infection [Recovered/Resolved]
  - Hepatic necrosis [Recovered/Resolved]
  - Fungaemia [Recovered/Resolved]
  - Fungal infection [Recovered/Resolved]
  - Transplant failure [Recovered/Resolved]
  - Jaundice [Recovered/Resolved]

NARRATIVE: CASE EVENT DATE: 2017
